FAERS Safety Report 5664982-2 (Version None)
Quarter: 2008Q1

REPORT INFORMATION
  Report Type: 
  Country: None (occurrence: None)
  Receive Date: 20080314
  Receipt Date: 20080304
  Transmission Date: 20080703
  Serious: Yes (Other)
  Sender: FDA-Public Use
  Company Number: GB-PFIZER INC-2008018533

PATIENT
  Sex: Male
  Weight: 190 kg

DRUGS (1)
  1. CHANTIX [Suspect]
     Indication: SMOKING CESSATION THERAPY
     Route: 048
     Dates: start: 20070803, end: 20070901

REACTIONS (4)
  - AGGRESSION [None]
  - FATIGUE [None]
  - MOOD SWINGS [None]
  - PERSONALITY CHANGE [None]
